FAERS Safety Report 4712915-5 (Version None)
Quarter: 2005Q3

REPORT INFORMATION
  Report Type: 
  Country: None (occurrence: None)
  Receive Date: 20050713
  Receipt Date: 20050705
  Transmission Date: 20060218
  Serious: Yes (Death, Other)
  Sender: FDA-Public Use
  Company Number: US-BRISTOL-MYERS SQUIBB COMPANY-13026786

PATIENT
  Sex: Male

DRUGS (1)
  1. SERZONE [Suspect]

REACTIONS (3)
  - HEPATIC CIRRHOSIS [None]
  - HEPATITIS C [None]
  - PANCREATIC CARCINOMA [None]
